FAERS Safety Report 7171048-1 (Version None)
Quarter: 2010Q4

REPORT INFORMATION
  Report Type: 
  Country: None (occurrence: None)
  Receive Date: 20101207
  Receipt Date: 20101126
  Transmission Date: 20110411
  Serious: Yes (Hospitalization)
  Sender: FDA-Public Use
  Company Number: 2010JP006342

PATIENT
  Age: 74 Year
  Sex: Male
  Weight: 54.3 kg

DRUGS (4)
  1. FUNGUARD (MICAFUNGIN) INJECTION [Suspect]
     Indication: OESOPHAGEAL CANDIDIASIS
     Dosage: 75 MG, UID/QD, IV DRIP
     Route: 041
     Dates: start: 20100929, end: 20101004
  2. MINOCYCLINE (MINOCYCLINE) INJECTION [Suspect]
     Indication: ENTERITIS INFECTIOUS
     Dosage: 50 MG, BID, IV DRIP
     Route: 041
     Dates: start: 20100925, end: 20101006
  3. PRIMPERAN ELIXIR [Concomitant]
  4. OMEPRAZOLE [Concomitant]

REACTIONS (2)
  - LIVER DISORDER [None]
  - WHITE BLOOD CELL COUNT INCREASED [None]
